FAERS Safety Report 16367540 (Version 1)
Quarter: 2019Q2

REPORT INFORMATION
  Report Type: Spontaneous
  Country: US (occurrence: US)
  Receive Date: 20190529
  Receipt Date: 20190529
  Transmission Date: 20190711
  Serious: No
  Sender: FDA-Public Use
  Company Number: US-PFIZER INC-2019227736

PATIENT
  Age: 61 Year
  Sex: Male

DRUGS (5)
  1. ENTOCORT [Suspect]
     Active Substance: BUDESONIDE
     Dosage: UNK
  2. UNASYN [Suspect]
     Active Substance: AMPICILLIN SODIUM\SULBACTAM SODIUM
     Dosage: UNK
  3. BACTRIM [Suspect]
     Active Substance: SULFAMETHOXAZOLE\TRIMETHOPRIM
     Dosage: UNK
  4. BEXTRA [BUCINDOLOL HYDROCHLORIDE] [Suspect]
     Active Substance: BUCINDOLOL HYDROCHLORIDE
     Dosage: UNK
  5. RELAFEN [Suspect]
     Active Substance: NABUMETONE
     Dosage: UNK

REACTIONS (1)
  - Drug hypersensitivity [Unknown]
